FAERS Safety Report 7072305-X (Version None)
Quarter: 2010Q4

REPORT INFORMATION
  Report Type: 
  Country: None (occurrence: None)
  Receive Date: 20101029
  Receipt Date: 20100106
  Transmission Date: 20110411
  Serious: No
  Sender: FDA-Public Use
  Company Number: A0838021A

PATIENT
  Age: 55 Year
  Sex: Female

DRUGS (7)
  1. ADVAIR DISKUS 100/50 [Suspect]
     Indication: ASTHMA
     Dosage: 1PUFF TWICE PER DAY
     Route: 055
     Dates: start: 20091231, end: 20100104
  2. FLONASE [Suspect]
     Indication: PRODUCT USED FOR UNKNOWN INDICATION
     Route: 045
     Dates: start: 20020101
  3. AZITHROMYCIN [Concomitant]
  4. TRAMADOL HCL [Concomitant]
  5. WARFARIN SODIUM [Concomitant]
  6. PREDNISONE [Concomitant]
  7. ALBUTEROL [Concomitant]

REACTIONS (4)
  - LIP SWELLING [None]
  - PHARYNGEAL OEDEMA [None]
  - PRURITUS [None]
  - THROAT IRRITATION [None]
